FAERS Safety Report 8476179-1 (Version None)
Quarter: 2012Q2

REPORT INFORMATION
  Report Type: 
  Country: None (occurrence: None)
  Receive Date: 20120628
  Receipt Date: 20120620
  Transmission Date: 20120825
  Serious: Yes (Hospitalization)
  Sender: FDA-Public Use
  Company Number: CA-ELI_LILLY_AND_COMPANY-CA201110006584

PATIENT
  Age: 65 Year
  Sex: Female

DRUGS (11)
  1. FORTEO [Suspect]
     Indication: OSTEOPOROSIS
     Dosage: 20 UG, QD
     Route: 058
     Dates: start: 20110524, end: 20120523
  2. PLAVIX [Concomitant]
     Dosage: 75 MG, UNK
  3. VITAMIN D [Concomitant]
     Dosage: 4000 IU, UNK
  4. ENBREL [Concomitant]
  5. CANDESARTAN                        /01349502/ [Concomitant]
     Dosage: 8 MG, UNK
  6. FORTEO [Suspect]
     Dosage: 20 UG, QD
     Route: 058
     Dates: start: 20120526
  7. CLONAZEPAM [Concomitant]
  8. METOPROLOL TARTRATE [Concomitant]
     Dosage: 25 MG, UNK
  9. ASPIRIN [Concomitant]
     Dosage: 81 MG, UNK
  10. DILTIAZEM HYDROCHOLORIDE [Concomitant]
     Dosage: 180 MG, UNK
  11. LEFLUNOMIDE [Concomitant]

REACTIONS (3)
  - HEADACHE [None]
  - INTRACRANIAL ANEURYSM [None]
  - HYPERTENSION [None]
